FAERS Safety Report 9961288 (Version 2)
Quarter: 2014Q1

REPORT INFORMATION
  Report Type: Report from Study
  Country: DE (occurrence: DE)
  Receive Date: 20140305
  Receipt Date: 20140305
  Transmission Date: 20141002
  Serious: Yes (Death, Hospitalization, Other)
  Sender: FDA-Public Use
  Company Number: DE-ROCHE-703430

PATIENT
  Age: 68 Year
  Sex: Male
  Weight: 72 kg

DRUGS (4)
  1. MYCOPHENOLATE MOFETIL [Suspect]
     Indication: RENAL TRANSPLANT
     Route: 048
     Dates: start: 20090928
  2. BASILIXIMAB [Suspect]
     Indication: RENAL TRANSPLANT
     Route: 048
  3. TACROLIMUS [Suspect]
     Indication: RENAL TRANSPLANT
     Route: 048
  4. PREDNISOLON [Suspect]
     Indication: RENAL TRANSPLANT
     Route: 048
     Dates: start: 20090928

REACTIONS (5)
  - Cardio-respiratory arrest [Fatal]
  - Pulmonary sepsis [Fatal]
  - Pneumonia [Recovered/Resolved with Sequelae]
  - Renal failure chronic [Unknown]
  - Dyspnoea [Not Recovered/Not Resolved]
